FAERS Safety Report 4453906-1 (Version None)
Quarter: 2004Q3

REPORT INFORMATION
  Report Type: 
  Country: None (occurrence: None)
  Receive Date: 20040826
  Receipt Date: 20040429
  Transmission Date: 20050211
  Serious: No
  Sender: FDA-Public Use
  Company Number: WAES 0404USA02564

PATIENT
  Age: 72 Year
  Sex: Male
  Weight: 94.3482 kg

DRUGS (7)
  1. ZETIA [Suspect]
     Indication: HYPERCHOLESTEROLAEMIA
     Dosage: 10 MG/DAILY/PO
     Route: 048
     Dates: start: 20040409, end: 20040412
  2. ZETIA [Suspect]
     Indication: HYPERCHOLESTEROLAEMIA
     Dosage: 10 MG/DAILY/PO
     Route: 048
     Dates: start: 20030604, end: 20040704
  3. AVANDIA [Concomitant]
  4. AVAPRO [Concomitant]
  5. HYDRODIURIL [Concomitant]
  6. FOLIC ACID [Concomitant]
  7. METOPROLOL [Concomitant]

REACTIONS (2)
  - HAEMATOCHEZIA [None]
  - NAUSEA [None]
